FAERS Safety Report 8273549-1 (Version None)
Quarter: 2012Q2

REPORT INFORMATION
  Report Type: 
  Country: None (occurrence: None)
  Receive Date: 20120411
  Receipt Date: 20120104
  Transmission Date: 20120825
  Serious: No
  Sender: FDA-Public Use
  Company Number: US-TEVA-316419USA

PATIENT
  Sex: Female
  Weight: 63.56 kg

DRUGS (5)
  1. ANTARA (MICRONIZED) [Concomitant]
     Indication: BLOOD CHOLESTEROL INCREASED
     Route: 048
  2. SOLIFENACIN SUCCINATE [Concomitant]
     Indication: INCONTINENCE
     Route: 048
  3. CIMICIFUGA RACEMOSA ROOT [Concomitant]
     Indication: MENOPAUSE
     Route: 048
  4. ERGOCALCIFEROL [Concomitant]
     Indication: VITAMIN SUPPLEMENTATION
     Dosage: 17.8571 MILLIGRAM;
     Route: 048
  5. NUVIGIL [Suspect]
     Indication: NARCOLEPSY
     Dosage: 150 MILLIGRAM;
     Route: 048
     Dates: start: 20110503, end: 20111103

REACTIONS (1)
  - FATIGUE [None]
